FAERS Safety Report 5270165-0 (Version None)
Quarter: 2007Q1

REPORT INFORMATION
  Report Type: 
  Country: None (occurrence: None)
  Receive Date: 20070314
  Receipt Date: 20070227
  Transmission Date: 20070707
  Serious: Yes (Other)
  Sender: FDA-Public Use
  Company Number: 2006BI016096

PATIENT
  Age: 68 Year
  Sex: Male

DRUGS (5)
  1. AVONEX [Suspect]
     Indication: MULTIPLE SCLEROSIS
     Dosage: 30 UG; QW; IM
     Route: 030
     Dates: start: 20040801, end: 20060806
  2. ARTHRIFORTE [Concomitant]
  3. BRUFEN [Concomitant]
  4. NORMISON [Concomitant]
  5. CITALOPRAM HYDROBROMIDE [Concomitant]

REACTIONS (4)
  - BASEDOW'S DISEASE [None]
  - HYPERTHYROIDISM [None]
  - LYMPHADENOPATHY [None]
  - THYROIDITIS [None]
